FAERS Safety Report 5771064-8 (Version None)
Quarter: 2008Q2

REPORT INFORMATION
  Report Type: 
  Country: None (occurrence: None)
  Receive Date: 20080613
  Receipt Date: 20080527
  Transmission Date: 20081010
  Serious: No
  Sender: FDA-Public Use
  Company Number: US-ABBOTT-08P-163-0453690-00

PATIENT
  Sex: Female
  Weight: 58.112 kg

DRUGS (15)
  1. HUMIRA [Suspect]
     Indication: RHEUMATOID ARTHRITIS
     Dosage: SYRINGE
     Route: 058
     Dates: start: 20030201, end: 20080512
  2. HUMIRA [Suspect]
     Dosage: PEN
     Route: 058
     Dates: start: 20080512
  3. TYLOX [Concomitant]
     Indication: ARTHRALGIA
     Route: 048
     Dates: start: 20020101
  4. PREDNISONE TAB [Concomitant]
     Indication: RHEUMATOID ARTHRITIS
     Route: 048
     Dates: start: 20020101
  5. METHOTREXATE [Concomitant]
     Indication: RHEUMATOID ARTHRITIS
     Dosage: FOUR 15 MG TABLETS EVERY FOUR DAYS
     Route: 048
     Dates: start: 20020101
  6. LISINOPRIL [Concomitant]
     Indication: HYPERTENSION
     Route: 048
     Dates: start: 20020101
  7. FOLIC ACID [Concomitant]
     Indication: STOMATITIS
     Route: 048
     Dates: start: 20020101
  8. FOLIC ACID [Concomitant]
     Indication: PROPHYLAXIS
  9. ESTROPIPATE [Concomitant]
     Indication: OESTROGEN REPLACEMENT THERAPY
     Route: 048
     Dates: start: 20000101
  10. CALCIUM D [Concomitant]
     Indication: ARTHRITIS
     Dates: start: 20030101
  11. CALCIUM D [Concomitant]
     Indication: BONE DENSITY DECREASED
  12. MULTI-VITAMIN [Concomitant]
     Indication: ROUTINE HEALTH MAINTENANCE
     Route: 048
  13. FEXOFENADINE [Concomitant]
     Indication: HYPERSENSITIVITY
     Route: 048
     Dates: start: 20071101
  14. FLUTICASONE PROPIONATE [Concomitant]
     Indication: HYPERSENSITIVITY
     Route: 045
  15. FISH OIL [Concomitant]
     Indication: BLOOD CHOLESTEROL INCREASED
     Route: 048
     Dates: start: 20071101

REACTIONS (4)
  - ACCIDENTAL EXPOSURE [None]
  - INJECTION SITE BRUISING [None]
  - INJECTION SITE HAEMORRHAGE [None]
  - INJECTION SITE NODULE [None]
